FAERS Safety Report 6939039-0 (Version None)
Quarter: 2010Q3

REPORT INFORMATION
  Report Type: 
  Country: None (occurrence: None)
  Receive Date: 20100824
  Receipt Date: 20100420
  Transmission Date: 20110219
  Serious: No
  Sender: FDA-Public Use
  Company Number: US-MYLANLABS-2010S1006929

PATIENT
  Age: 50 Year
  Sex: Female

DRUGS (7)
  1. MELOXICAM TABLETS [Suspect]
     Route: 048
     Dates: start: 20090601
  2. PRILOSEC [Concomitant]
  3. VITAMIN D [Concomitant]
  4. ACTIVELLA /00686201/ [Concomitant]
  5. VENTOLIN [Concomitant]
  6. ADVAIR DISKUS 100/50 [Concomitant]
  7. ALLEGRA D 24 HOUR [Concomitant]

REACTIONS (2)
  - JOINT SWELLING [None]
  - RASH PRURITIC [None]
